FAERS Safety Report 11812470 (Version 1)
Quarter: 2015Q4

REPORT INFORMATION
  Report Type: Spontaneous
  Country: US (occurrence: US)
  Receive Date: 20151208
  Receipt Date: 20151208
  Transmission Date: 20160305
  Serious: Yes (Hospitalization)
  Sender: FDA-Public Use
  Company Number: US-B.I. PHARMACEUTICALS,INC./RIDGEFIELD-2015-BI-68029BP

PATIENT
  Age: 71 Year
  Sex: Male
  Weight: 88 kg

DRUGS (10)
  1. ALLUPURINOL [Concomitant]
     Indication: PERIPHERAL SWELLING
     Dosage: 300 MG
     Route: 048
     Dates: start: 2009
  2. FERROUS SULFATE [Concomitant]
     Active Substance: FERROUS SULFATE\FERROUS SULFATE, DRIED
     Indication: PRODUCT USED FOR UNKNOWN INDICATION
     Dosage: 325 MG
     Route: 048
     Dates: start: 2009
  3. SPIRIVA [Suspect]
     Active Substance: TIOTROPIUM BROMIDE MONOHYDRATE
     Indication: EMPHYSEMA
     Dosage: 18 MCG
     Route: 055
     Dates: start: 2004
  4. FUROSEMIDE. [Concomitant]
     Active Substance: FUROSEMIDE
     Indication: FLUID RETENTION
     Dosage: 80 MG
     Route: 048
     Dates: start: 2009
  5. FOLIC ACID. [Concomitant]
     Active Substance: FOLIC ACID
     Indication: PRODUCT USED FOR UNKNOWN INDICATION
     Dosage: 1 MG
     Route: 048
     Dates: start: 2009
  6. ADVAIR HFA [Concomitant]
     Active Substance: FLUTICASONE PROPIONATE\SALMETEROL XINAFOATE
     Indication: EMPHYSEMA
     Dosage: DOSE PER APPLICATION AND DAILY DOSE: 250/50;
     Route: 055
     Dates: start: 2004
  7. METOPROLOL [Concomitant]
     Active Substance: METOPROLOL
     Indication: HYPERTENSION
     Dosage: 50 MG
     Route: 048
  8. ALLUPURINOL [Concomitant]
     Indication: GOUT
  9. TAMSOLOSIN [Concomitant]
     Indication: PROSTATOMEGALY
     Dosage: 0.4 MG
     Route: 048
     Dates: start: 2006
  10. ATORVASTATIN [Concomitant]
     Active Substance: ATORVASTATIN
     Indication: ROUTINE HEALTH MAINTENANCE
     Dosage: 10 MG
     Route: 048
     Dates: start: 201509

REACTIONS (1)
  - Hiatus hernia [Recovered/Resolved]

NARRATIVE: CASE EVENT DATE: 20150727
